FAERS Safety Report 13905918 (Version 1)
Quarter: 2017Q3

REPORT INFORMATION
  Report Type: Spontaneous
  Country: US (occurrence: US)
  Receive Date: 20170825
  Receipt Date: 20170825
  Transmission Date: 20171127
  Serious: Yes (Hospitalization, Other)
  Sender: FDA-Public Use
  Company Number: US-BAYER-2017-161288

PATIENT
  Age: 15 Year
  Sex: Female
  Weight: 93.42 kg

DRUGS (2)
  1. BAYER ASPIRIN [Suspect]
     Active Substance: ASPIRIN
     Indication: ABDOMINAL PAIN
     Dosage: UNK
     Route: 048
     Dates: start: 201702, end: 201702
  2. SERTRALINE [Concomitant]
     Active Substance: SERTRALINE HYDROCHLORIDE
     Indication: MAJOR DEPRESSION
     Dosage: 25 MG, QD
     Route: 048
     Dates: start: 20160205, end: 201701

REACTIONS (2)
  - Abdominal pain [Unknown]
  - Ulcer [Unknown]

NARRATIVE: CASE EVENT DATE: 201702
